FAERS Safety Report 16943858 (Version 1)
Quarter: 2019Q4

REPORT INFORMATION
  Report Type: Spontaneous
  Country: CA (occurrence: CA)
  Receive Date: 20191022
  Receipt Date: 20191022
  Transmission Date: 20200122
  Serious: Yes (Disabling)
  Sender: FDA-Public Use
  Company Number: CA-TEVA-2019-CA-1124600

PATIENT
  Age: 48 Year
  Sex: Female
  Weight: 140 kg

DRUGS (9)
  1. ALPRAZOLAM. [Concomitant]
     Active Substance: ALPRAZOLAM
  2. NRA-PANTOPRAZOLE [Concomitant]
  3. ACETAMINOPHEN. [Concomitant]
     Active Substance: ACETAMINOPHEN
  4. TEVA CLONIDINE [Concomitant]
     Active Substance: CLONIDINE
     Indication: FLUSHING
  5. FUROSEMIDE. [Concomitant]
     Active Substance: FUROSEMIDE
  6. JAMP FOSFOMYCIN [Concomitant]
  7. ATENOLOL. [Concomitant]
     Active Substance: ATENOLOL
     Indication: BLOOD PRESSURE MEASUREMENT
  8. VYVANSE [Concomitant]
     Active Substance: LISDEXAMFETAMINE DIMESYLATE
     Dosage: 40 MILLIGRAM DAILY;
  9. TRAZODONE [Suspect]
     Active Substance: TRAZODONE HYDROCHLORIDE
     Indication: SLEEP DISORDER
     Dosage: 50 MILLIGRAM DAILY;
     Route: 065

REACTIONS (4)
  - Paraesthesia oral [Not Recovered/Not Resolved]
  - Peripheral swelling [Not Recovered/Not Resolved]
  - Erythema [Not Recovered/Not Resolved]
  - Lip swelling [Not Recovered/Not Resolved]
